FAERS Safety Report 7674176-7 (Version None)
Quarter: 2011Q3

REPORT INFORMATION
  Report Type: 
  Country: None (occurrence: None)
  Receive Date: 20110810
  Receipt Date: 20110729
  Transmission Date: 20111222
  Serious: Yes (Hospitalization)
  Sender: FDA-Public Use
  Company Number: US-JNJFOC-20110801074

PATIENT
  Sex: Female
  Weight: 124.74 kg

DRUGS (15)
  1. METHOTREXATE [Concomitant]
     Indication: RHEUMATOID ARTHRITIS
     Dates: start: 20110101
  2. POTASSIUM [Concomitant]
     Indication: ELECTROLYTE SUBSTITUTION THERAPY
     Route: 048
  3. CLONIDINE [Concomitant]
     Indication: HYPERTENSION
     Route: 048
     Dates: start: 20100101
  4. HYDRALAZINE HCL [Concomitant]
     Dates: start: 20100101
  5. LASIX [Concomitant]
     Route: 048
     Dates: start: 20090101
  6. SIMPONI [Suspect]
     Indication: RHEUMATOID ARTHRITIS
     Route: 058
     Dates: start: 20110501
  7. DURAGESIC-100 [Suspect]
     Indication: PAIN
     Route: 062
     Dates: start: 20110101
  8. FOLIC ACID [Concomitant]
     Route: 048
     Dates: start: 20110101
  9. VICODIN [Concomitant]
     Indication: PAIN
     Dosage: 7.5/750MG
     Route: 048
  10. CENTRUM SILVER [Concomitant]
     Indication: VITAMIN SUPPLEMENTATION
     Route: 048
  11. LYRICA [Concomitant]
     Indication: NEUROPATHY PERIPHERAL
     Route: 048
     Dates: start: 20090101
  12. AMITRIPTYLINE HCL [Concomitant]
     Indication: BACK PAIN
     Dates: start: 20090101
  13. ATENOLOL [Concomitant]
     Indication: HEART RATE INCREASED
     Route: 048
     Dates: start: 20090101
  14. CELEBREX [Concomitant]
     Indication: PAIN
     Route: 048
     Dates: end: 20110715
  15. VITAMIN-MINERAL COMPOUND TAB [Concomitant]
     Indication: DRY EYE
     Dates: start: 20090101

REACTIONS (9)
  - GAIT DISTURBANCE [None]
  - GLOMERULAR FILTRATION RATE DECREASED [None]
  - DYSPNOEA [None]
  - OXYGEN SATURATION DECREASED [None]
  - BLOOD CREATINE INCREASED [None]
  - BLOOD UREA INCREASED [None]
  - HYPOTENSION [None]
  - ASTHENIA [None]
  - BLOOD POTASSIUM DECREASED [None]
